FAERS Safety Report 13519869 (Version 2)
Quarter: 2017Q3

REPORT INFORMATION
  Report Type: Report from Study
  Country: US (occurrence: US)
  Receive Date: 20170506
  Receipt Date: 20170801
  Transmission Date: 20171127
  Serious: Yes (Other)
  Sender: FDA-Public Use
  Company Number: PHEH2017US012413

PATIENT
  Sex: Female

DRUGS (1)
  1. GLEEVEC [Suspect]
     Active Substance: IMATINIB MESYLATE
     Indication: PRODUCT USED FOR UNKNOWN INDICATION
     Dosage: 100 MG, QD
     Route: 065

REACTIONS (12)
  - Hyperhidrosis [Unknown]
  - Sinusitis [Unknown]
  - Euphoric mood [Unknown]
  - Wound [Unknown]
  - Oropharyngeal pain [Recovered/Resolved]
  - Swollen tongue [Unknown]
  - Bone pain [Unknown]
  - Burning sensation [Unknown]
  - Eye haemorrhage [Recovered/Resolved]
  - Eye infection [Unknown]
  - Dyspnoea [Recovered/Resolved]
  - Dry skin [Unknown]
